FAERS Safety Report 21236294 (Version 1)
Quarter: 2022Q3

REPORT INFORMATION
  Report Type: Other
  Country: CN (occurrence: CN)
  Receive Date: 20220822
  Receipt Date: 20220822
  Transmission Date: 20221027
  Serious: Yes (Hospitalization)
  Sender: FDA-Public Use
  Company Number: CN-DEXPHARM-20221388

PATIENT
  Age: 56 Year
  Sex: Male

DRUGS (10)
  1. HEPARIN SODIUM [Concomitant]
     Active Substance: HEPARIN SODIUM
  2. METFORMIN [Concomitant]
     Active Substance: METFORMIN HYDROCHLORIDE
  3. SITAGLIPTIN [Concomitant]
     Active Substance: SITAGLIPTIN
  4. NIFEDIPINE [Concomitant]
     Active Substance: NIFEDIPINE
  5. HYDROCHLOROTHIAZIDE [Concomitant]
     Active Substance: HYDROCHLOROTHIAZIDE
  6. TACROLIMUS [Interacting]
     Active Substance: TACROLIMUS
     Indication: Glomerulonephritis membranous
     Dosage: 1.5 MG TWICE DAILY
     Dates: start: 202010
  7. TACROLIMUS [Interacting]
     Active Substance: TACROLIMUS
     Indication: Glomerulonephritis membranous
     Dosage: 2.0 MG TWICE DAILY FROM DAY 7 OF ADMINISTRATION
  8. TACROLIMUS [Interacting]
     Active Substance: TACROLIMUS
     Indication: Glomerulonephritis membranous
     Dosage: 2.5 MG ORALLY TWICE DAILY FROM DAY 14 OF ADMISSION
  9. METHYLPREDNISOLONE [Concomitant]
     Active Substance: METHYLPREDNISOLONE
     Indication: Glomerulonephritis membranous
     Dosage: 12 MG/D
     Dates: start: 202010
  10. OMEPRAZOLE [Interacting]
     Active Substance: OMEPRAZOLE
     Indication: Gastrointestinal haemorrhage
     Dosage: 20 MG ONCE DAILY
     Dates: start: 202010

REACTIONS (2)
  - Drug interaction [Recovered/Resolved]
  - Drug level changed [Recovered/Resolved]
